FAERS Safety Report 10540126 (Version 1)
Quarter: 2014Q4

REPORT INFORMATION
  Report Type: Other
  Country: US (occurrence: US)
  Receive Date: 20141024
  Receipt Date: 20141024
  Transmission Date: 20150529
  Serious: Yes (Hospitalization)
  Sender: FDA-Public Use
  Company Number: US-ENDO PHARMACEUTICALS INC-PHEN20140012

PATIENT
  Age: 45 Year
  Sex: Female

DRUGS (2)
  1. PHENTERMINE HCL TABLETS [Suspect]
     Active Substance: PHENTERMINE HYDROCHLORIDE
     Dosage: 37.5 MG
     Route: 048
  2. PHENTERMINE HCL TABLETS [Suspect]
     Active Substance: PHENTERMINE HYDROCHLORIDE
     Indication: WEIGHT CONTROL
     Dosage: 37.5 MG
     Route: 048

REACTIONS (1)
  - Subarachnoid haemorrhage [Recovered/Resolved]
